FAERS Safety Report 4554191-2 (Version None)
Quarter: 2005Q1

REPORT INFORMATION
  Report Type: 
  Country: None (occurrence: None)
  Receive Date: 20050118
  Receipt Date: 20050106
  Transmission Date: 20050727
  Serious: Yes (Death)
  Sender: FDA-Public Use
  Company Number: US-JNJFOC-20040901078

PATIENT
  Sex: Female
  Weight: 125.65 kg

DRUGS (28)
  1. REMICADE [Suspect]
     Indication: RHEUMATOID ARTHRITIS
     Route: 042
  2. METHOTREXATE [Concomitant]
  3. VICODIN [Concomitant]
  4. VICODIN [Concomitant]
     Dosage: 7.5/750 - AS NEEDED.
  5. IMITREX [Concomitant]
  6. POTASIUM [Concomitant]
     Dosage: 20
  7. SKELAXIN [Concomitant]
     Dosage: 40MG TO 800MG
  8. FOLIC ACID [Concomitant]
  9. LOPID [Concomitant]
  10. SYNTHROID [Concomitant]
  11. WELLBUTRIN XL [Concomitant]
  12. NEXIUM [Concomitant]
  13. CLARINEX [Concomitant]
  14. PRAVACHOL [Concomitant]
     Dosage: AT BEDTIME- DOSE CHANGED ON 1-APR-2004.
  15. AVAPRO [Concomitant]
  16. LASIX [Concomitant]
  17. NOVALOG [Concomitant]
     Dosage: SLIDING SCALE.
  18. NOVALIN N [Concomitant]
     Dosage: SLIDING SCALE- EVENING
  19. ALBUTEROL [Concomitant]
     Dosage: 1-2 PUFFS AS NEEDED.
  20. CITRACAL [Concomitant]
  21. MULTIVITAMIN [Concomitant]
  22. MULTIVITAMIN [Concomitant]
  23. MULTIVITAMIN [Concomitant]
  24. MULTIVITAMIN [Concomitant]
  25. MULTIVITAMIN [Concomitant]
  26. MULTIVITAMIN [Concomitant]
  27. MULTIVITAMIN [Concomitant]
  28. MULTIVITAMIN [Concomitant]

REACTIONS (2)
  - ARRHYTHMIA [None]
  - SUDDEN DEATH [None]
